FAERS Safety Report 21301174 (Version 1)
Quarter: 2022Q3

REPORT INFORMATION
  Report Type: Spontaneous
  Country: US (occurrence: None)
  Receive Date: 20220906
  Receipt Date: 20220906
  Transmission Date: 20221026
  Serious: Yes (Other)
  Sender: FDA-Public Use
  Company Number: None

PATIENT
  Age: 0 Year
  Sex: Female
  Weight: 3.18 kg

DRUGS (3)
  1. ESCITALOPRAM [Suspect]
     Active Substance: ESCITALOPRAM OXALATE
  2. ARIPIPRAZOLE [Suspect]
     Active Substance: ARIPIPRAZOLE
  3. PANTOPRAZOLE [Suspect]
     Active Substance: PANTOPRAZOLE

REACTIONS (4)
  - Umbilical cord around neck [None]
  - Respiratory failure [None]
  - Maternal exposure during pregnancy [None]
  - Foetal exposure during pregnancy [None]

NARRATIVE: CASE EVENT DATE: 20210405
